FAERS Safety Report 16897332 (Version 1)
Quarter: 2019Q4

REPORT INFORMATION
  Report Type: Report from Study
  Country: US (occurrence: US)
  Receive Date: 20191009
  Receipt Date: 20191009
  Transmission Date: 20200122
  Serious: Yes (Other)
  Sender: FDA-Public Use
  Company Number: US-UCBSA-2019041890

PATIENT
  Sex: Male

DRUGS (1)
  1. LEVETIRACETAM. [Suspect]
     Active Substance: LEVETIRACETAM
     Indication: SEIZURE
     Dosage: UNK

REACTIONS (7)
  - Hemiparesis [Unknown]
  - Frustration tolerance decreased [Unknown]
  - Craniocerebral injury [Unknown]
  - Anger [Unknown]
  - Aphasia [Unknown]
  - Drug ineffective [Unknown]
  - Seizure [Unknown]
